FAERS Safety Report 19278246 (Version 1)
Quarter: 2021Q2

REPORT INFORMATION
  Report Type: Spontaneous
  Country: US (occurrence: US)
  Receive Date: 20210519
  Receipt Date: 20210519
  Transmission Date: 20210717
  Serious: Yes (Life-Threatening, Hospitalization, Disabling, Other)
  Sender: FDA-Public Use
  Company Number: None

PATIENT
  Age: 33 Year
  Sex: Female
  Weight: 56.25 kg

DRUGS (4)
  1. TRIAMCINOLONE [Suspect]
     Active Substance: TRIAMCINOLONE
     Indication: ECZEMA
     Dosage: ?          OTHER ROUTE:OTHER SERIOD?
     Dates: start: 20110825, end: 20180612
  2. PROTOPIC [Suspect]
     Active Substance: TACROLIMUS
  3. ELIDEL [Suspect]
     Active Substance: PIMECROLIMUS
  4. PREDNISOLONE. [Suspect]
     Active Substance: PREDNISOLONE

REACTIONS (7)
  - Emotional distress [None]
  - Rash [None]
  - Skin injury [None]
  - Drug ineffective [None]
  - Impaired self-care [None]
  - Insomnia [None]
  - Impaired work ability [None]

NARRATIVE: CASE EVENT DATE: 20160404
